FAERS Safety Report 5202113-3 (Version None)
Quarter: 2007Q1

REPORT INFORMATION
  Report Type: 
  Country: None (occurrence: None)
  Receive Date: 20070109
  Receipt Date: 20070104
  Transmission Date: 20070707
  Serious: Yes (Other)
  Sender: FDA-Public Use
  Company Number: PHBS2006GR17999

PATIENT
  Age: 90 Year
  Sex: Male

DRUGS (1)
  1. FAMVIR [Suspect]
     Indication: HERPES ZOSTER
     Dosage: 250 MG, BID
     Route: 048
     Dates: start: 20061018, end: 20061025

REACTIONS (2)
  - AGITATION [None]
  - INSOMNIA [None]
